FAERS Safety Report 6866127-X (Version None)
Quarter: 2010Q3

REPORT INFORMATION
  Report Type: 
  Country: None (occurrence: None)
  Receive Date: 20100722
  Receipt Date: 20100713
  Transmission Date: 20110219
  Serious: Yes (Death, Hospitalization)
  Sender: FDA-Public Use
  Company Number: KR-SANOFI-AVENTIS-2010SA037209

PATIENT
  Age: 31 Year
  Sex: Male

DRUGS (5)
  1. OXALIPLATIN [Suspect]
     Indication: METASTATIC GASTRIC CANCER
     Route: 042
     Dates: start: 20090811, end: 20090811
  2. OXALIPLATIN [Suspect]
     Route: 042
     Dates: start: 20091210, end: 20091210
  3. CAPECITABINE [Suspect]
     Indication: METASTATIC GASTRIC CANCER
     Route: 048
     Dates: start: 20090811, end: 20100607
  4. SUNITINIB MALATE [Suspect]
     Indication: METASTATIC GASTRIC CANCER
     Route: 048
     Dates: start: 20090811, end: 20100606
  5. ACETAMINOPHEN [Concomitant]
     Dates: start: 20100601

REACTIONS (3)
  - PNEUMONIA [None]
  - PULMONARY EMBOLISM [None]
  - PULMONARY HYPERTENSION [None]
